FAERS Safety Report 25660935 (Version 1)
Quarter: 2025Q3

REPORT INFORMATION
  Report Type: Report from Study
  Country: US (occurrence: US)
  Receive Date: 20250808
  Receipt Date: 20250808
  Transmission Date: 20251020
  Serious: Yes (Other)
  Sender: PFIZER
  Company Number: US-PFIZER INC-202500157024

PATIENT
  Age: 77 Year
  Sex: Male

DRUGS (13)
  1. VYNDAMAX [Suspect]
     Active Substance: TAFAMIDIS
     Dosage: 61MG CAP, TAKE 1 CAPSULE BY MOUTH DAILY
     Route: 048
     Dates: start: 20250730
  2. TORSEMIDE [Concomitant]
     Active Substance: TORSEMIDE
  3. BUMETANIDE [Concomitant]
     Active Substance: BUMETANIDE
  4. JARDIANCE [Concomitant]
     Active Substance: EMPAGLIFLOZIN
  5. METOPROLOL [Concomitant]
     Active Substance: METOPROLOL
  6. XARELTO [Concomitant]
     Active Substance: RIVAROXABAN
  7. POTASSIUM CHLORIDE [Concomitant]
     Active Substance: POTASSIUM CHLORIDE
  8. FUROSEMIDE [Concomitant]
     Active Substance: FUROSEMIDE
  9. METOLAZONE [Concomitant]
     Active Substance: METOLAZONE
  10. FINASTERIDE [Concomitant]
     Active Substance: FINASTERIDE
  11. ENTRESTO [Concomitant]
     Active Substance: SACUBITRIL\VALSARTAN
  12. ROSUVASTATIN [Concomitant]
     Active Substance: ROSUVASTATIN
  13. SPIRONOLACTONE [Concomitant]
     Active Substance: SPIRONOLACTONE

REACTIONS (2)
  - Choking [Unknown]
  - Product use complaint [Unknown]
